FAERS Safety Report 5228555-8 (Version None)
Quarter: 2007Q1

REPORT INFORMATION
  Report Type: 
  Country: None (occurrence: None)
  Receive Date: 20070131
  Receipt Date: 20070118
  Transmission Date: 20070707
  Serious: Yes (Other)
  Sender: FDA-Public Use
  Company Number: 235213

PATIENT

DRUGS (10)
  1. MABTHERA (RITUXIMAB) CONC FOR SOLUTION FOR INFUSION [Suspect]
     Indication: MANTLE CELL LYMPHOMA
     Dosage: 250 MG/M2, SINGLE, INTRAVENOUS
     Route: 042
  2. CYCLOPHOSPHAMIDE [Suspect]
     Indication: MANTLE CELL LYMPHOMA
     Dosage: 1200 MG/M2, SINGLE, INTRAVENOUS
     Route: 042
  3. DOXORUBICIN HCL [Suspect]
     Indication: MANTLE CELL LYMPHOMA
     Dosage: 75 MG/M2, INTRAVENOUS
     Route: 042
  4. PREDNISOLONE [Suspect]
     Indication: MANTLE CELL LYMPHOMA
     Dosage: 100 MG, ORAL
     Route: 048
  5. VINCRISTINE [Suspect]
     Indication: MANTLE CELL LYMPHOMA
     Dosage: 2 MG, INTRAVENOUS
     Route: 042
  6. CARMUSTINE [Suspect]
     Indication: MANTLE CELL LYMPHOMA
     Dosage: 300 MG/M2, INTRAVENOUS
     Route: 042
  7. ETOPOSIDE [Suspect]
     Indication: MANTLE CELL LYMPHOMA
     Dosage: 200 MG/M2, INTRAVENOUS
     Route: 042
  8. CYTARABINE [Suspect]
     Indication: MANTLE CELL LYMPHOMA
     Dosage: INTRAVENOUS
     Route: 042
  9. MELPHALAN [Suspect]
     Indication: MANTLE CELL LYMPHOMA
     Dosage: 140 MG/M2, INTRAVENOUS
     Route: 042
  10. YTARCIS (YTTRIUM-90) [Suspect]
     Indication: MANTLE CELL LYMPHOMA
     Dosage: 0.4 MCI/KG

REACTIONS (1)
  - TRANSIENT ISCHAEMIC ATTACK [None]
